FAERS Safety Report 6291309-8 (Version None)
Quarter: 2009Q3

REPORT INFORMATION
  Report Type: 
  Country: None (occurrence: None)
  Receive Date: 20090730
  Receipt Date: 20090720
  Transmission Date: 20100115
  Serious: Yes (Hospitalization, Other)
  Sender: FDA-Public Use
  Company Number: PL-MERCK-0907POL00003

PATIENT
  Age: 4 Year
  Sex: Female
  Weight: 20 kg

DRUGS (5)
  1. SINGULAIR [Suspect]
     Indication: ASTHMA
     Route: 048
     Dates: start: 20080101
  2. LEVOCETIRIZINE DIHYDROCHLORIDE [Concomitant]
     Route: 065
     Dates: end: 20090101
  3. FLUTICASONE PROPIONATE [Concomitant]
     Route: 065
     Dates: end: 20090101
  4. FENOTEROL HYDROBROMIDE AND IPRATROPIUM BROMIDE [Concomitant]
     Route: 065
     Dates: end: 20090101
  5. DEXAMETHASONE [Suspect]
     Route: 048
     Dates: start: 20090601, end: 20090701

REACTIONS (3)
  - DIABETES MELLITUS [None]
  - LEUKAEMIA [None]
  - PYREXIA [None]
